FAERS Safety Report 6220463-9 (Version None)
Quarter: 2009Q2

REPORT INFORMATION
  Report Type: 
  Country: None (occurrence: None)
  Receive Date: 20090610
  Receipt Date: 20090605
  Transmission Date: 20091009
  Serious: Yes (Hospitalization)
  Sender: FDA-Public Use
  Company Number: CZ-BAYER-200922533GPV

PATIENT
  Age: 37 Year
  Sex: Female

DRUGS (3)
  1. BETAFERON [Suspect]
     Indication: RELAPSING-REMITTING MULTIPLE SCLEROSIS
     Dates: start: 20060201, end: 20080801
  2. MEDROL [Concomitant]
     Indication: MULTIPLE SCLEROSIS
  3. IMURAN [Concomitant]
     Indication: MULTIPLE SCLEROSIS

REACTIONS (12)
  - EPISTAXIS [None]
  - GRAND MAL CONVULSION [None]
  - HAEMOLYTIC ANAEMIA [None]
  - HEADACHE [None]
  - HEMIPARESIS [None]
  - LOSS OF CONSCIOUSNESS [None]
  - NON-CARDIOGENIC PULMONARY OEDEMA [None]
  - RENAL FAILURE [None]
  - RESTLESSNESS [None]
  - SUBCUTANEOUS HAEMATOMA [None]
  - THROMBOCYTOPENIA [None]
  - THROMBOTIC THROMBOCYTOPENIC PURPURA [None]
